FAERS Safety Report 6503506-4 (Version None)
Quarter: 2009Q4

REPORT INFORMATION
  Report Type: 
  Country: None (occurrence: None)
  Receive Date: 20091217
  Receipt Date: 20091214
  Transmission Date: 20100525
  Serious: Yes (Other)
  Sender: FDA-Public Use
  Company Number: US-SP-2009-02677

PATIENT
  Age: 17 Year
  Sex: Female

DRUGS (6)
  1. MENACTRA [Suspect]
     Indication: IMMUNISATION
     Route: 030
     Dates: start: 20090602
  2. MENACTRA [Suspect]
     Route: 030
     Dates: start: 20090602
  3. MENACTRA [Suspect]
     Route: 030
     Dates: start: 20090602
  4. TUBERSOL [Suspect]
     Indication: TUBERCULIN TEST
     Dosage: ROUTE: SUBDERMAL
     Dates: start: 20090602
  5. TUBERSOL [Suspect]
     Dosage: ROUTE: SUBDERMAL
     Dates: start: 20090602
  6. TUBERSOL [Suspect]
     Dosage: ROUTE: SUBDERMAL
     Dates: start: 20090602

REACTIONS (8)
  - COUGH [None]
  - FATIGUE [None]
  - INFECTIOUS MONONUCLEOSIS [None]
  - LYME DISEASE [None]
  - LYMPHADENITIS [None]
  - LYMPHADENOPATHY [None]
  - OROPHARYNGEAL PAIN [None]
  - PAIN IN JAW [None]
